FAERS Safety Report 15696826 (Version 2)
Quarter: 2019Q1

REPORT INFORMATION
  Report Type: Spontaneous
  Country: US (occurrence: US)
  Receive Date: 20181206
  Receipt Date: 20190326
  Transmission Date: 20190417
  Serious: No
  Sender: FDA-Public Use
  Company Number: US-PFIZER INC-2018492672

PATIENT
  Age: 42 Year
  Sex: Female

DRUGS (2)
  1. AZATHIOPRINE. [Concomitant]
     Active Substance: AZATHIOPRINE
     Dosage: UNK
  2. METHOTREXATE SODIUM. [Suspect]
     Active Substance: METHOTREXATE SODIUM
     Indication: BEHCET^S SYNDROME
     Dosage: 10 MG, 2X/DAY
     Dates: start: 2012

REACTIONS (8)
  - Eyelash discolouration [Recovered/Resolved]
  - Skin hypopigmentation [Recovering/Resolving]
  - Eyelash hypopigmentation [Recovered/Resolved]
  - Skin exfoliation [Recovered/Resolved]
  - Hair disorder [Recovered/Resolved]
  - Toxicity to various agents [Recovered/Resolved]
  - Drug effective for unapproved indication [Unknown]
  - Madarosis [Recovered/Resolved]

NARRATIVE: CASE EVENT DATE: 2012
